FAERS Safety Report 7069253-8 (Version None)
Quarter: 2010Q4

REPORT INFORMATION
  Report Type: 
  Country: None (occurrence: None)
  Receive Date: 20101028
  Receipt Date: 20101015
  Transmission Date: 20110411
  Serious: Yes (Other)
  Sender: FDA-Public Use
  Company Number: FR-GENENTECH-307558

PATIENT
  Sex: Female

DRUGS (1)
  1. MABTHERA [Suspect]
     Indication: DEMYELINATING POLYNEUROPATHY
     Dosage: UNK
     Route: 065

REACTIONS (1)
  - PANCREATIC CARCINOMA [None]
